FAERS Safety Report 11320063 (Version 4)
Quarter: 2015Q4

REPORT INFORMATION
  Report Type: Report from Study
  Country: AR (occurrence: AR)
  Receive Date: 20150729
  Receipt Date: 20151215
  Transmission Date: 20160304
  Serious: No
  Sender: FDA-Public Use
  Company Number: PHHY2014AR136112

PATIENT
  Age: 62 Year
  Sex: Male

DRUGS (3)
  1. SANDOSTATIN LAR DEPOT [Suspect]
     Active Substance: OCTREOTIDE ACETATE
     Dosage: 20 MG (2 APPLICATIONS MONTHLY)
     Route: 065
     Dates: end: 201509
  2. SANDOSTATIN LAR DEPOT [Suspect]
     Active Substance: OCTREOTIDE ACETATE
     Dosage: 30 MG, QMO
     Route: 030
     Dates: start: 201312
  3. SANDOSTATIN LAR DEPOT [Suspect]
     Active Substance: OCTREOTIDE ACETATE
     Indication: ACROMEGALY
     Dosage: 20 MG (2 APPLICATIONS MONTHLY)
     Route: 065
     Dates: start: 20111215

REACTIONS (5)
  - Incorrect product storage [Unknown]
  - Drug effect decreased [Not Recovered/Not Resolved]
  - Renal oncocytoma [Recovered/Resolved]
  - Device occlusion [Recovered/Resolved]
  - Blood growth hormone increased [Recovered/Resolved]

NARRATIVE: CASE EVENT DATE: 201306
